FAERS Safety Report 9840730 (Version 3)
Quarter: 2014Q1

REPORT INFORMATION
  Report Type: Report from Study
  Country: US (occurrence: US)
  Receive Date: 20140124
  Receipt Date: 20140318
  Transmission Date: 20141002
  Serious: Yes (Hospitalization, Other)
  Sender: FDA-Public Use
  Company Number: US-ROCHE-1338471

PATIENT
  Age: 69 Year
  Sex: Female

DRUGS (1)
  1. LUCENTIS [Suspect]
     Indication: CEREBROVASCULAR ACCIDENT
     Dosage: LEFT EYE
     Route: 050
     Dates: start: 20110906, end: 20120103

REACTIONS (2)
  - Cerebrovascular accident [Recovered/Resolved with Sequelae]
  - Cerebrovascular accident [Unknown]
